FAERS Safety Report 4361831-X (Version None)
Quarter: 2004Q2

REPORT INFORMATION
  Report Type: 
  Country: None (occurrence: None)
  Receive Date: 20040521
  Receipt Date: 20040322
  Transmission Date: 20050107
  Serious: No
  Sender: FDA-Public Use
  Company Number: US-GLAXOSMITHKLINE-A0503840A

PATIENT
  Age: 27 Year
  Sex: Male

DRUGS (7)
  1. WELLBUTRIN XL [Suspect]
     Indication: DEPRESSION
     Dosage: 300MG PER DAY
     Route: 048
     Dates: start: 20040301
  2. PAXIL CR [Suspect]
     Indication: DEPRESSION
     Dosage: 25MG PER DAY
     Route: 048
     Dates: start: 20040327
  3. HYDROXYZINE PAMOATE [Concomitant]
  4. TRAZODONE HCL [Concomitant]
  5. VISTARIL [Concomitant]
  6. PERCOCET [Concomitant]
  7. OXYCONTIN [Concomitant]

REACTIONS (3)
  - AMNESIA [None]
  - ANXIETY [None]
  - ERECTILE DYSFUNCTION [None]
